FAERS Safety Report 6510536-5 (Version None)
Quarter: 2009Q4

REPORT INFORMATION
  Report Type: 
  Country: None (occurrence: None)
  Receive Date: 20091222
  Receipt Date: 20091212
  Transmission Date: 20100525
  Serious: Yes (Hospitalization)
  Sender: FDA-Public Use
  Company Number: CA-WYE-H12642709

PATIENT
  Age: 81 Year
  Sex: Female

DRUGS (1)
  1. ADVIL COLD AND SINUS [Suspect]
     Indication: HEADACHE
     Dosage: 2 CAPLETS EVERY 4 HOURS
     Route: 048
     Dates: start: 20091210, end: 20091210

REACTIONS (8)
  - APHASIA [None]
  - DRUG INEFFECTIVE [None]
  - DYSPHAGIA [None]
  - HYPOAESTHESIA ORAL [None]
  - NERVOUS SYSTEM DISORDER [None]
  - OVERDOSE [None]
  - SWOLLEN TONGUE [None]
  - TONGUE PARALYSIS [None]
